FAERS Safety Report 5277159-X (Version None)
Quarter: 2007Q1

REPORT INFORMATION
  Report Type: 
  Country: None (occurrence: None)
  Receive Date: 20070322
  Receipt Date: 20070322
  Transmission Date: 20070707
  Serious: Yes (Life-Threatening, Hospitalization)
  Sender: FDA-Public Use
  Company Number: None

PATIENT
  Age: 30 Year
  Sex: Female
  Weight: 69.9 kg

DRUGS (1)
  1. SEASONALE [Suspect]
     Indication: CONTRACEPTION
     Dosage: 1 TABLET DAILY FOR 84 DAYS PO
     Route: 048
     Dates: start: 20060801, end: 20070301

REACTIONS (1)
  - PULMONARY EMBOLISM [None]
